FAERS Safety Report 16532237 (Version 2)
Quarter: 2019Q3

REPORT INFORMATION
  Report Type: Spontaneous
  Country: JP (occurrence: JP)
  Receive Date: 20190704
  Receipt Date: 20190903
  Transmission Date: 20191004
  Serious: Yes (Hospitalization, Disabling, Other)
  Sender: FDA-Public Use
  Company Number: JP-GLAXOSMITHKLINE-JP2019JPN117786

PATIENT
  Age: 48 Year
  Sex: Female
  Weight: 35 kg

DRUGS (3)
  1. BENLYSTA [Suspect]
     Active Substance: BELIMUMAB
     Indication: SYSTEMIC LUPUS ERYTHEMATOSUS
     Dosage: 200 MG, WE
     Route: 058
     Dates: start: 20190520
  2. DECADRON [Concomitant]
     Active Substance: DEXAMETHASONE
     Dosage: 3 MG, 1D
  3. DECADRON [Concomitant]
     Active Substance: DEXAMETHASONE
     Dosage: 8 MG, 1D
     Dates: start: 2019

REACTIONS (7)
  - Large intestine perforation [Recovered/Resolved with Sequelae]
  - Spinal compression fracture [Not Recovered/Not Resolved]
  - Fractured sacrum [Not Recovered/Not Resolved]
  - Pubis fracture [Not Recovered/Not Resolved]
  - Sepsis [Unknown]
  - Osteoporosis [Unknown]
  - Staphylococcal infection [Unknown]

NARRATIVE: CASE EVENT DATE: 20190530
